FAERS Safety Report 10460894 (Version 1)
Quarter: 2014Q3

REPORT INFORMATION
  Report Type: Spontaneous
  Country: CA (occurrence: None)
  Receive Date: 20140916
  Receipt Date: 20140916
  Transmission Date: 20150326
  Serious: Yes (Death, Hospitalization)
  Sender: FDA-Public Use
  Company Number: C-14-119

PATIENT
  Age: 39 Year
  Sex: Female
  Weight: 90 kg

DRUGS (10)
  1. IEVOTHYROXINE [Concomitant]
  2. INDOMETHACIN. [Suspect]
     Active Substance: INDOMETHACIN
     Dosage: 50 TABLETS
     Route: 048
  3. TOPIRAMATE. [Concomitant]
     Active Substance: TOPIRAMATE
  4. OLANZAPINE. [Concomitant]
     Active Substance: OLANZAPINE
  5. LORAZEPAM. [Concomitant]
     Active Substance: LORAZEPAM
  6. OXYCODONE [Concomitant]
     Active Substance: OXYCODONE
  7. OMEPRAZOLE. [Concomitant]
     Active Substance: OMEPRAZOLE
  8. COLCHICINE. [Suspect]
     Active Substance: COLCHICINE
     Dosage: 40 TABLETS
     Route: 048
  9. VALPROIC ACID. [Concomitant]
     Active Substance: VALPROIC ACID
  10. FUROSEMIDE. [Concomitant]
     Active Substance: FUROSEMIDE

REACTIONS (21)
  - Abdominal pain [None]
  - Pain [None]
  - Haemodynamic instability [None]
  - Agitation [None]
  - Respiratory distress [None]
  - Lung infiltration [None]
  - Septic shock [None]
  - Diarrhoea [None]
  - Metabolic acidosis [None]
  - International normalised ratio increased [None]
  - White blood cell count decreased [None]
  - Renal failure acute [None]
  - Nephropathy toxic [None]
  - Renal tubular disorder [None]
  - Hypovolaemia [None]
  - Nausea [None]
  - Troponin T increased [None]
  - Intentional overdose [None]
  - Febrile neutropenia [None]
  - Vomiting [None]
  - Multi-organ failure [None]
